FAERS Safety Report 5505710-0 (Version None)
Quarter: 2007Q4

REPORT INFORMATION
  Report Type: 
  Country: None (occurrence: None)
  Receive Date: 20071102
  Receipt Date: 20071030
  Transmission Date: 20080405
  Serious: Yes (Death)
  Sender: FDA-Public Use
  Company Number: DE-ABBOTT-07P-062-0422755-00

PATIENT
  Age: 58 Year
  Sex: Male
  Weight: 68 kg

DRUGS (7)
  1. ZEMPLAR [Suspect]
     Indication: HYPERPARATHYROIDISM SECONDARY
     Route: 042
     Dates: start: 20070202, end: 20070216
  2. ZEMPLAR [Suspect]
     Route: 042
     Dates: start: 20070216, end: 20070302
  3. ZEMPLAR [Suspect]
     Route: 042
     Dates: start: 20070302, end: 20070424
  4. ALUMINIUM CHLORHYDROXIDE-COMPLEX [Concomitant]
     Indication: DRUG USE FOR UNKNOWN INDICATION
     Dosage: 2-3-2
     Dates: end: 20070424
  5. OSTEOTRIOL [Concomitant]
     Indication: DRUG USE FOR UNKNOWN INDICATION
     Dates: end: 20070424
  6. PREGABALIN [Concomitant]
     Indication: DRUG USE FOR UNKNOWN INDICATION
     Dates: start: 20060317, end: 20070424
  7. SODIUM BICARBONATE [Concomitant]
     Indication: DRUG USE FOR UNKNOWN INDICATION
     Dates: start: 20060317, end: 20070424

REACTIONS (1)
  - POST PROCEDURAL SEPSIS [None]
